FAERS Safety Report 15042500 (Version 2)
Quarter: 2019Q1

REPORT INFORMATION
  Report Type: Spontaneous
  Country: JP (occurrence: JP)
  Receive Date: 20180621
  Receipt Date: 20190114
  Transmission Date: 20190417
  Serious: Yes (Death, Hospitalization)
  Sender: FDA-Public Use
  Company Number: JP-ACTELION-A-CH2018-171420

PATIENT
  Age: 72 Year
  Sex: Female

DRUGS (25)
  1. REVATIO [Concomitant]
     Active Substance: SILDENAFIL CITRATE
  2. MAGMITT [Concomitant]
     Active Substance: MAGNESIUM OXIDE
  3. PURSENNID [Concomitant]
     Active Substance: SENNOSIDES A AND B
  4. BONOTEO [Concomitant]
     Active Substance: MINODRONIC ACID
  5. HUMALOG [Concomitant]
     Active Substance: INSULIN LISPRO
  6. REBAMIPIDE [Concomitant]
     Active Substance: REBAMIPIDE
  7. ROZEREM [Concomitant]
     Active Substance: RAMELTEON
  8. IMURAN [Concomitant]
     Active Substance: AZATHIOPRINE
  9. ALDACTONE A [Concomitant]
     Active Substance: SPIRONOLACTONE
  10. FERROMIA [Concomitant]
     Active Substance: SODIUM FERROUS CITRATE
  11. LIPITOR [Concomitant]
     Active Substance: ATORVASTATIN CALCIUM
  12. FOLIAMIN [Concomitant]
     Active Substance: FOLIC ACID
  13. ISCOTIN [Concomitant]
     Active Substance: ISONIAZID
  14. CELECOX [Concomitant]
     Active Substance: CELECOXIB
  15. RELVAR [Concomitant]
     Active Substance: FLUTICASONE FUROATE\VILANTEROL TRIFENATATE
  16. OXYGEN. [Concomitant]
     Active Substance: OXYGEN
  17. PROCYLIN [Concomitant]
     Active Substance: BERAPROST SODIUM
  18. WARFARIN [Concomitant]
     Active Substance: WARFARIN
  19. LASIX [Concomitant]
     Active Substance: FUROSEMIDE
  20. LANTUS [Concomitant]
     Active Substance: INSULIN GLARGINE
  21. PARIET [Concomitant]
     Active Substance: RABEPRAZOLE SODIUM
  22. AMLODIPINE [Concomitant]
     Active Substance: AMLODIPINE BESYLATE
  23. ONEALFA [Concomitant]
     Active Substance: ALFACALCIDOL
  24. OPSUMIT [Suspect]
     Active Substance: MACITENTAN
     Indication: PULMONARY ARTERIAL HYPERTENSION
     Dosage: 10 MG, QD
     Route: 048
     Dates: start: 20180329, end: 20180423
  25. PREDONINE [Concomitant]
     Active Substance: PREDNISOLONE

REACTIONS (14)
  - Anaemia [Not Recovered/Not Resolved]
  - Pharyngeal oedema [Not Recovered/Not Resolved]
  - Pulmonary oedema [Fatal]
  - Decreased appetite [Unknown]
  - Pyrexia [Unknown]
  - Constipation [Unknown]
  - Blood glucose increased [Unknown]
  - Heart rate increased [Unknown]
  - Headache [Recovered/Resolved]
  - Cough [Unknown]
  - Dyspnoea [Not Recovered/Not Resolved]
  - Upper airway obstruction [Not Recovered/Not Resolved]
  - Haemorrhage subcutaneous [Unknown]
  - Haemoptysis [Unknown]

NARRATIVE: CASE EVENT DATE: 20180329
